FAERS Safety Report 11807111 (Version 1)
Quarter: 2015Q4

REPORT INFORMATION
  Report Type: Report from Study
  Country: CN (occurrence: CN)
  Receive Date: 20151207
  Receipt Date: 20151207
  Transmission Date: 20160305
  Serious: Yes (Other)
  Sender: FDA-Public Use
  Company Number: CN-BAXALTA-2015BAX029611

PATIENT
  Age: 8 Year
  Weight: 35 kg

DRUGS (2)
  1. ADVATE [Suspect]
     Active Substance: ANTIHEMOPHILIC FACTOR, HUMAN RECOMBINANT
     Indication: PROPHYLAXIS
  2. ADVATE [Suspect]
     Active Substance: ANTIHEMOPHILIC FACTOR, HUMAN RECOMBINANT
     Indication: HAEMOPHILIA
     Dosage: 500 IU, 2X A WEEK, LOW DOSAGE LONG TERM REGULAR INJECTION
     Route: 065
     Dates: start: 20140801

REACTIONS (2)
  - Haemorrhage [Unknown]
  - Haemarthrosis [Recovered/Resolved]

NARRATIVE: CASE EVENT DATE: 201501
